FAERS Safety Report 8267900-6 (Version None)
Quarter: 2012Q2

REPORT INFORMATION
  Report Type: 
  Country: None (occurrence: None)
  Receive Date: 20120404
  Receipt Date: 20120321
  Transmission Date: 20120825
  Serious: Yes (Other)
  Sender: FDA-Public Use
  Company Number: 2012MA003966

PATIENT
  Age: 50 Year
  Sex: Male

DRUGS (20)
  1. STELARA [Concomitant]
  2. IMMUNOSUPPRESSIVE AGENTS [Concomitant]
  3. DIAZEPAM [Concomitant]
  4. PREGABALIN [Concomitant]
  5. METHOTREXATE [Concomitant]
  6. MOVIPREP [Concomitant]
  7. ATORVASTATIN [Concomitant]
  8. ZOPICLONE (ZOPICLONE) [Suspect]
     Indication: SLEEP DISORDER
  9. FOLIC ACID [Concomitant]
  10. PHENERGAN HCL [Concomitant]
  11. TRAMADOL HCL [Concomitant]
  12. ZOLPIDEM TARTRATE [Suspect]
     Indication: SLEEP DISORDER
     Dosage: 15 MG;
  13. DULOXETINE HYDROCHLORIDE [Concomitant]
  14. PERINDOPRIL ERBUMINE [Concomitant]
  15. MIRTAZAPINE [Concomitant]
  16. DILTIAZEM HCL [Concomitant]
  17. COLECALCIFEROL [Concomitant]
  18. ACETAMINOPHEN AND CODEINE PHOSPHATE [Concomitant]
  19. DIGOXIN [Concomitant]
  20. CITALOPRAM HYDROBROMIDE [Concomitant]

REACTIONS (3)
  - DRUG ADMINISTRATION ERROR [None]
  - DRUG INEFFECTIVE [None]
  - DRUG DEPENDENCE [None]
